FAERS Safety Report 18564161 (Version 1)
Quarter: 2020Q4

REPORT INFORMATION
  Report Type: Spontaneous
  Country: US (occurrence: US)
  Receive Date: 20201201
  Receipt Date: 20201201
  Transmission Date: 20210114
  Serious: No
  Sender: FDA-Public Use
  Company Number: US-BAUSCH-BL-2020-033613

PATIENT
  Sex: Male

DRUGS (2)
  1. TRETINOIN. [Suspect]
     Active Substance: TRETINOIN
     Indication: PRODUCT USE IN UNAPPROVED INDICATION
     Route: 061
  2. TRETINOIN. [Suspect]
     Active Substance: TRETINOIN
     Indication: PREMATURE AGEING
     Route: 061

REACTIONS (3)
  - Product use in unapproved indication [Unknown]
  - Skin irritation [Recovered/Resolved]
  - Erythema [Recovered/Resolved]
